FAERS Safety Report 6601216-6 (Version None)
Quarter: 2010Q1

REPORT INFORMATION
  Report Type: 
  Country: None (occurrence: None)
  Receive Date: 20100225
  Receipt Date: 20100218
  Transmission Date: 20100710
  Serious: Yes (Hospitalization)
  Sender: FDA-Public Use
  Company Number: FI-BRISTOL-MYERS SQUIBB COMPANY-14982094

PATIENT
  Age: 3 Decade
  Sex: Male

DRUGS (2)
  1. ABILIFY [Suspect]
     Indication: PSYCHOTIC DISORDER
  2. PERATSIN [Concomitant]
     Dosage: INJ

REACTIONS (2)
  - ANKLE FRACTURE [None]
  - SUICIDE ATTEMPT [None]
